FAERS Safety Report 8796031 (Version 2)
Quarter: 2012Q4

REPORT INFORMATION
  Report Type: Report from Study
  Country: US (occurrence: US)
  Receive Date: 20120920
  Receipt Date: 20121026
  Transmission Date: 20130627
  Serious: Yes (Hospitalization, Other)
  Sender: FDA-Public Use
  Company Number: US-ABBOTT-12P-163-0980274-00

PATIENT
  Age: 30 None
  Sex: Male
  Weight: 80.5 kg

DRUGS (7)
  1. HUMIRA [Suspect]
     Indication: CROHN^S DISEASE
     Route: 058
     Dates: start: 201112, end: 201206
  2. ENTOCORT [Concomitant]
     Indication: CROHN^S DISEASE
     Dates: start: 201111
  3. ISONIAZID [Concomitant]
     Indication: LATENT TUBERCULOSIS
     Dates: start: 201111
  4. PREDNISONE [Concomitant]
     Indication: CROHN^S DISEASE
  5. B6 [Concomitant]
     Indication: LATENT TUBERCULOSIS
     Dates: start: 201111
  6. AZATHIOPRINE [Concomitant]
     Indication: CROHN^S DISEASE
     Dates: start: 201111
  7. AZATHIOPRINE [Concomitant]
     Dates: start: 201209

REACTIONS (6)
  - Enterocutaneous fistula [Recovered/Resolved]
  - Small intestinal obstruction [Unknown]
  - Malnutrition [Recovered/Resolved]
  - Procedural complication [Recovered/Resolved]
  - Postoperative fever [Recovered/Resolved]
  - Rectal obstruction [Recovered/Resolved]
